FAERS Safety Report 7968219-0 (Version None)
Quarter: 2011Q4

REPORT INFORMATION
  Report Type: 
  Country: None (occurrence: None)
  Receive Date: 20111209
  Receipt Date: 20111202
  Transmission Date: 20120403
  Serious: Yes (Hospitalization)
  Sender: FDA-Public Use
  Company Number: PHHY2011IT96869

PATIENT
  Sex: Male

DRUGS (2)
  1. VOLTAREN [Suspect]
     Indication: NECK PAIN
     Dosage: 1 DF, DAILY
     Route: 030
     Dates: start: 20111030, end: 20111030
  2. MUSCORIL [Suspect]
     Indication: NECK PAIN
     Dosage: 1 DF, QD
     Route: 030
     Dates: start: 20111030, end: 20111030

REACTIONS (4)
  - PRESYNCOPE [None]
  - MALAISE [None]
  - BRADYCARDIA [None]
  - HYPOTENSION [None]
